FAERS Safety Report 11965142 (Version 3)
Quarter: 2016Q1

REPORT INFORMATION
  Report Type: Spontaneous
  Country: US (occurrence: US)
  Receive Date: 20160127
  Receipt Date: 20160204
  Transmission Date: 20160526
  Serious: Yes (Hospitalization)
  Sender: FDA-Public Use
  Company Number: US-DRREDDYS-USA/USA/16/0064896

PATIENT
  Age: 65 Year
  Sex: Female

DRUGS (5)
  1. ACICLOVIR [Suspect]
     Active Substance: ACYCLOVIR
     Indication: HERPES ZOSTER CUTANEOUS DISSEMINATED
     Route: 042
  2. VANCOMYCIN [Concomitant]
     Active Substance: VANCOMYCIN
     Indication: HERPES ZOSTER CUTANEOUS DISSEMINATED
     Route: 042
  3. VALACYCLOVIR [Suspect]
     Active Substance: VALACYCLOVIR HYDROCHLORIDE
     Indication: HERPES ZOSTER CUTANEOUS DISSEMINATED
  4. PREDNISONE. [Suspect]
     Active Substance: PREDNISONE
     Indication: HERPES ZOSTER CUTANEOUS DISSEMINATED
  5. CEFTRIAXONE. [Concomitant]
     Active Substance: CEFTRIAXONE
     Indication: HERPES ZOSTER CUTANEOUS DISSEMINATED
     Route: 042

REACTIONS (11)
  - Neurotoxicity [Recovered/Resolved]
  - Blood pressure increased [Unknown]
  - Coma scale abnormal [Unknown]
  - Toxicity to various agents [Unknown]
  - Electrocardiogram ST segment depression [Unknown]
  - Electrocardiogram T wave inversion [Unknown]
  - Electroencephalogram abnormal [Unknown]
  - Tachycardia [Unknown]
  - Pulmonary oedema [Unknown]
  - Myocardial ischaemia [Unknown]
  - Leukocytosis [Unknown]

NARRATIVE: CASE EVENT DATE: 201206
